FAERS Safety Report 5037241-9 (Version None)
Quarter: 2006Q2

REPORT INFORMATION
  Report Type: 
  Country: None (occurrence: None)
  Receive Date: 20060628
  Receipt Date: 19940726
  Transmission Date: 20061013
  Serious: Yes (Death, Other)
  Sender: FDA-Public Use
  Company Number: 1994UW17511

PATIENT
  Age: 18 Year
  Sex: Male
  Weight: 92.2 kg

DRUGS (7)
  1. DIPRIVAN [Suspect]
     Indication: DRUG INEFFECTIVE
     Dosage: 5 DAYS
     Route: 042
     Dates: start: 19940715, end: 19940717
  2. DIPRIVAN [Suspect]
     Route: 042
     Dates: start: 19940718, end: 19940720
  3. BENZODIAZEPINE [Concomitant]
  4. CODEINE [Concomitant]
  5. ACETAMINOPHEN [Concomitant]
  6. DIURETICS [Concomitant]
     Indication: BLOOD CREATINE PHOSPHOKINASE INCREASED
  7. BICARBONATE [Concomitant]
     Indication: BLOOD CREATINE PHOSPHOKINASE INCREASED

REACTIONS (15)
  - ATRIAL FIBRILLATION [None]
  - BACTERIAL INFECTION [None]
  - BRADYCARDIA [None]
  - BUNDLE BRANCH BLOCK [None]
  - CARDIAC ARREST [None]
  - CULTURE POSITIVE [None]
  - ELECTROMECHANICAL DISSOCIATION [None]
  - HYPERKALAEMIA [None]
  - HYPOTENSION [None]
  - METABOLIC ACIDOSIS [None]
  - METHAEMOGLOBINAEMIA [None]
  - MYOCARDIAL INFARCTION [None]
  - PNEUMOMEDIASTINUM [None]
  - PULSE ABSENT [None]
  - PYREXIA [None]
